FAERS Safety Report 5851202-9 (Version None)
Quarter: 2008Q3

REPORT INFORMATION
  Report Type: 
  Country: None (occurrence: None)
  Receive Date: 20080820
  Receipt Date: 20080813
  Transmission Date: 20090109
  Serious: Yes (Death, Life-Threatening, Hospitalization, Other)
  Sender: FDA-Public Use
  Company Number: PHHO2007BR13592

PATIENT
  Sex: Female
  Weight: 61 kg

DRUGS (3)
  1. TASIGNA [Suspect]
     Indication: CHRONIC MYELOID LEUKAEMIA
     Dosage: 800MG DAILY
     Route: 048
     Dates: start: 20070510
  2. TASIGNA [Suspect]
     Dosage: 800MG DAILY
     Route: 048
     Dates: start: 20070727, end: 20070803
  3. VANCOMYCIN [Concomitant]
     Dosage: 1 G, UNK
     Dates: start: 20070818, end: 20070818

REACTIONS (24)
  - ANAEMIA [None]
  - BLAST CRISIS IN MYELOGENOUS LEUKAEMIA [None]
  - CANDIDIASIS [None]
  - CHRONIC MYELOID LEUKAEMIA [None]
  - DRUG INEFFECTIVE [None]
  - DYSPNOEA [None]
  - ENDOTRACHEAL INTUBATION COMPLICATION [None]
  - FUNGAL INFECTION [None]
  - HEADACHE [None]
  - HERPES VIRUS INFECTION [None]
  - HYPOTENSION [None]
  - MECHANICAL VENTILATION [None]
  - MUCOSAL INFLAMMATION [None]
  - NERVOUS SYSTEM DISORDER [None]
  - NEUTROPENIA [None]
  - OXYGEN SATURATION DECREASED [None]
  - PANCYTOPENIA [None]
  - PYREXIA [None]
  - RENAL FAILURE [None]
  - SEPTIC SHOCK [None]
  - SINUS OPERATION [None]
  - SINUSITIS [None]
  - TACHYCARDIA [None]
  - TRACHEOSTOMY [None]
